FAERS Safety Report 6642365-6 (Version None)
Quarter: 2010Q1

REPORT INFORMATION
  Report Type: 
  Country: None (occurrence: None)
  Receive Date: 20100319
  Receipt Date: 20100222
  Transmission Date: 20100710
  Serious: Yes (Other)
  Sender: FDA-Public Use
  Company Number: BR-ROCHE-688052

PATIENT
  Sex: Female

DRUGS (4)
  1. ISOTRETINOIN [Suspect]
     Indication: DRUG USE FOR UNKNOWN INDICATION
     Route: 065
     Dates: start: 20090101, end: 20090101
  2. BACTRIM [Suspect]
     Route: 065
     Dates: start: 20090101
  3. TANDRILAX [Suspect]
     Route: 065
     Dates: start: 20090101
  4. METRONIDAZOLE [Suspect]
     Route: 065
     Dates: start: 20090101

REACTIONS (6)
  - DRY SKIN [None]
  - EPISTAXIS [None]
  - GASTROINTESTINAL INFECTION [None]
  - LIP OEDEMA [None]
  - NASAL DRYNESS [None]
  - SYSTEMIC LUPUS ERYTHEMATOSUS [None]
